FAERS Safety Report 19063608 (Version 2)
Quarter: 2021Q2

REPORT INFORMATION
  Report Type: Spontaneous
  Country: JP (occurrence: JP)
  Receive Date: 20210326
  Receipt Date: 20210409
  Transmission Date: 20210717
  Serious: Yes (Death, Other)
  Sender: FDA-Public Use
  Company Number: JP-PFIZER INC-2021307473

PATIENT
  Age: 55 Year
  Sex: Male

DRUGS (2)
  1. METHOTREXATE 1000MG [Suspect]
     Active Substance: METHOTREXATE
     Indication: HODGKIN^S DISEASE
     Dosage: 2500 MG, 1X/DAY FOR 3 HOURS
     Route: 041
     Dates: start: 20210224, end: 20210224
  2. METHOTREXATE 200MG [Suspect]
     Active Substance: METHOTREXATE
     Indication: HODGKIN^S DISEASE
     Dosage: UNK
     Dates: start: 20210224, end: 20210224

REACTIONS (10)
  - Hepatic failure [Fatal]
  - Neutrophil count decreased [Fatal]
  - Platelet count decreased [Fatal]
  - White blood cell count decreased [Fatal]
  - Myelosuppression [Fatal]
  - Renal failure [Fatal]
  - Hepatitis fulminant [Fatal]
  - Multiple organ dysfunction syndrome [Fatal]
  - Lymphoma [Fatal]
  - Disease recurrence [Fatal]

NARRATIVE: CASE EVENT DATE: 2021
